FAERS Safety Report 8519755-X (Version None)
Quarter: 2012Q3

REPORT INFORMATION
  Report Type: 
  Country: None (occurrence: None)
  Receive Date: 20120719
  Receipt Date: 20120710
  Transmission Date: 20120928
  Serious: No
  Sender: FDA-Public Use
  Company Number: US-BIOGENIDEC-2012BI009239

PATIENT
  Sex: Female

DRUGS (4)
  1. TYSABRI [Suspect]
     Route: 042
     Dates: start: 20100713, end: 20100713
  2. TYSABRI [Suspect]
     Route: 042
     Dates: start: 20110923, end: 20120426
  3. AVONEX [Concomitant]
     Indication: MULTIPLE SCLEROSIS
     Route: 030
  4. TYSABRI [Suspect]
     Indication: MULTIPLE SCLEROSIS
     Route: 042
     Dates: start: 20081013, end: 20091223

REACTIONS (4)
  - WOUND [None]
  - LOCALISED INFECTION [None]
  - SKIN INFECTION [None]
  - INFECTION [None]
